FAERS Safety Report 8814109 (Version 1)
Quarter: 2012Q4

REPORT INFORMATION
  Report Type: Spontaneous
  Country: US (occurrence: None)
  Receive Date: 20120925
  Receipt Date: 20120925
  Transmission Date: 20130627
  Serious: Yes (Other)
  Sender: FDA-Public Use
  Company Number: US-TORRENT-00000261

PATIENT
  Sex: Male

DRUGS (1)
  1. MONTELUKAST [Suspect]
     Dosage: chewable

REACTIONS (3)
  - Urticaria [None]
  - Wheezing [None]
  - Product substitution issue [None]
